FAERS Safety Report 7475786-2 (Version None)
Quarter: 2011Q2

REPORT INFORMATION
  Report Type: 
  Country: None (occurrence: None)
  Receive Date: 20110510
  Receipt Date: 20110510
  Transmission Date: 20111010
  Serious: Yes (Other)
  Sender: FDA-Public Use
  Company Number: None

PATIENT
  Age: 39 Year
  Sex: Female
  Weight: 90.7194 kg

DRUGS (1)
  1. TOPAMAX [Suspect]
     Indication: MIGRAINE
     Dosage: 100MG BID PO
     Route: 048
     Dates: start: 20050201, end: 20050827

REACTIONS (3)
  - PARAESTHESIA ORAL [None]
  - IMPAIRED DRIVING ABILITY [None]
  - NAUSEA [None]
